FAERS Safety Report 8878031 (Version 1)
Quarter: 2012Q4

REPORT INFORMATION
  Report Type: Spontaneous
  Country: TR (occurrence: None)
  Receive Date: 20121026
  Receipt Date: 20121026
  Transmission Date: 20130627
  Serious: Yes (Death)
  Sender: FDA-Public Use
  Company Number: DSA_60324_2012

PATIENT

DRUGS (7)
  1. FLUOROURACIL (FLUOROURACIL) [Suspect]
     Indication: GASTRIC CANCER
     Route: 040
  2. FLUOROURACIL (FLUOROURACIL) [Suspect]
     Indication: GASTRIC CANCER
  3. EPIRUBICIN (EPIRUBICIN) (EPIRUBICIN) [Suspect]
     Indication: GASTRIC CANCER
     Route: 040
  4. CISPLATIN [Suspect]
     Indication: GASTRIC CANCER
     Route: 042
  5. LEUCOVORIN [Suspect]
  6. LEUCOVORIN [Suspect]
     Indication: GASTRIC CANCER
     Route: 042
  7. GRANULOCYTE COLONY STIMULATING FACTOR [Concomitant]

REACTIONS (1)
  - Death [None]
